FAERS Safety Report 13430182 (Version 11)
Quarter: 2019Q1

REPORT INFORMATION
  Report Type: Report from Study
  Country: US (occurrence: US)
  Receive Date: 20170412
  Receipt Date: 20190117
  Transmission Date: 20190417
  Serious: Yes (Other)
  Sender: FDA-Public Use
  Company Number: US-AMGEN-USASL2017051866

PATIENT
  Age: 85 Year
  Sex: Female

DRUGS (5)
  1. ENBREL [Suspect]
     Active Substance: ETANERCEPT
     Dosage: 50 MG, QWK
     Route: 065
  2. ENBREL [Suspect]
     Active Substance: ETANERCEPT
     Dosage: 50 MG, QWK
     Route: 065
  3. ENBREL [Suspect]
     Active Substance: ETANERCEPT
     Dosage: 50 MG, QWK
     Route: 065
  4. ENBREL [Suspect]
     Active Substance: ETANERCEPT
     Indication: ANKYLOSING SPONDYLITIS
     Dosage: 50 MG, QWK
     Route: 065
     Dates: start: 2017
  5. ENBREL [Suspect]
     Active Substance: ETANERCEPT
     Dosage: 50 MG, QWK
     Route: 065
     Dates: start: 201809

REACTIONS (14)
  - Impaired healing [Unknown]
  - Arthropathy [Unknown]
  - Chondrocalcinosis pyrophosphate [Unknown]
  - Bacterial infection [Recovered/Resolved]
  - Gingivitis [Not Recovered/Not Resolved]
  - Bronchitis [Unknown]
  - Limb injury [Unknown]
  - Tooth disorder [Unknown]
  - Oropharyngeal pain [Unknown]
  - Cyst [Unknown]
  - Pain [Unknown]
  - Cough [Not Recovered/Not Resolved]
  - Peripheral swelling [Unknown]
  - Nasopharyngitis [Unknown]

NARRATIVE: CASE EVENT DATE: 201706
